FAERS Safety Report 5776503-4 (Version None)
Quarter: 2008Q2

REPORT INFORMATION
  Report Type: 
  Country: None (occurrence: None)
  Receive Date: 20080617
  Receipt Date: 20080617
  Transmission Date: 20081010
  Serious: Yes (Hospitalization)
  Sender: FDA-Public Use
  Company Number: None

PATIENT
  Sex: Male
  Weight: 124.7392 kg

DRUGS (1)
  1. CELLCEPT [Suspect]
     Indication: IGA NEPHROPATHY
     Dosage: 2000 MG DAILY PO
     Route: 048
     Dates: start: 20050901, end: 20050923

REACTIONS (8)
  - DYSGEUSIA [None]
  - DYSPHAGIA [None]
  - DYSSTASIA [None]
  - MENTAL DISORDER [None]
  - MOTOR DYSFUNCTION [None]
  - MUSCULAR WEAKNESS [None]
  - NEUROPATHY PERIPHERAL [None]
  - VERTIGO [None]
